FAERS Safety Report 6825547-X (Version None)
Quarter: 2010Q3

REPORT INFORMATION
  Report Type: 
  Country: None (occurrence: None)
  Receive Date: 20100708
  Receipt Date: 20071005
  Transmission Date: 20110219
  Serious: No
  Sender: FDA-Public Use
  Company Number: US-PFIZER INC-2006137885

PATIENT
  Sex: Female
  Weight: 58.97 kg

DRUGS (2)
  1. CHANTIX [Suspect]
     Indication: SMOKING CESSATION THERAPY
     Route: 048
     Dates: start: 20061005
  2. NICOTINE [Concomitant]
     Dates: end: 20061001

REACTIONS (6)
  - ABDOMINAL DISTENSION [None]
  - HEADACHE [None]
  - MALAISE [None]
  - MIGRAINE [None]
  - NAUSEA [None]
  - NOCTURIA [None]
